FAERS Safety Report 15919123 (Version 1)
Quarter: 2019Q1

REPORT INFORMATION
  Report Type: Spontaneous
  Country: US (occurrence: US)
  Receive Date: 20190205
  Receipt Date: 20190205
  Transmission Date: 20190417
  Serious: No
  Sender: FDA-Public Use
  Company Number: US-NOVAST LABORATORIES, LTD-US-2018NOV000088

PATIENT
  Age: 39 Year
  Sex: Female
  Weight: 63.49 kg

DRUGS (1)
  1. DASETTA 1/35 [Suspect]
     Active Substance: ETHINYL ESTRADIOL\NORETHINDRONE
     Indication: CONTRACEPTION
     Dosage: UNK
     Route: 048
     Dates: start: 201801

REACTIONS (2)
  - Hyperaesthesia [Unknown]
  - Metrorrhagia [Unknown]

NARRATIVE: CASE EVENT DATE: 201802
